FAERS Safety Report 5844031-3 (Version None)
Quarter: 2008Q3

REPORT INFORMATION
  Report Type: 
  Country: None (occurrence: None)
  Receive Date: 20080813
  Receipt Date: 20080806
  Transmission Date: 20090109
  Serious: Yes (Hospitalization)
  Sender: FDA-Public Use
  Company Number: US-SANOFI-SYNTHELABO-A03200802841

PATIENT
  Sex: Male
  Weight: 77.1 kg

DRUGS (3)
  1. AMBIEN CR [Suspect]
     Indication: INSOMNIA
     Route: 048
     Dates: start: 20060301, end: 20060802
  2. KLONOPIN [Concomitant]
     Indication: ANXIETY
     Route: 048
     Dates: start: 20030101, end: 20080101
  3. PAXIL CR [Concomitant]
     Indication: DEPRESSION
     Route: 048
     Dates: start: 20030101, end: 20080101

REACTIONS (5)
  - AMNESIA [None]
  - DISORIENTATION [None]
  - SCHIZOPHRENIA, PARANOID TYPE [None]
  - SLEEP TALKING [None]
  - SUICIDAL IDEATION [None]
